FAERS Safety Report 7808413-2 (Version None)
Quarter: 2011Q4

REPORT INFORMATION
  Report Type: 
  Country: None (occurrence: None)
  Receive Date: 20111007
  Receipt Date: 20110926
  Transmission Date: 20120403
  Serious: Yes (Other)
  Sender: FDA-Public Use
  Company Number: 2011MA014494

PATIENT
  Age: 81 Year
  Sex: Female

DRUGS (11)
  1. OLANZAPINE [Suspect]
     Indication: MAJOR DEPRESSION
     Dosage: PO
     Route: 048
     Dates: start: 20110413, end: 20110731
  2. LORAZEPAM [Concomitant]
  3. DULOXETIME HYDROCHLORIDE [Concomitant]
  4. ZOLPIDEM [Concomitant]
  5. RAMIPRIL [Concomitant]
  6. MIRTAZAPINE [Suspect]
     Indication: MAJOR DEPRESSION
     Dosage: PO
     Route: 048
     Dates: start: 20100920
  7. VALDOXAN (NO PREF. NAME) [Suspect]
     Indication: MAJOR DEPRESSION
     Dosage: 25 MG;QD;PO
     Route: 048
     Dates: start: 20110730, end: 20110730
  8. ASPIRIN [Concomitant]
  9. LEVOTHYROXINE SODIUM [Concomitant]
  10. MIRTAZAPINE [Suspect]
     Indication: MAJOR DEPRESSION
     Dates: start: 20100920
  11. SIMVASTATIN [Concomitant]

REACTIONS (4)
  - SYNCOPE [None]
  - HYPOTENSION [None]
  - ABDOMINAL PAIN [None]
  - DRUG INTERACTION [None]
